FAERS Safety Report 4492363-6 (Version None)
Quarter: 2004Q3

REPORT INFORMATION
  Report Type: 
  Country: None (occurrence: None)
  Receive Date: 20040921
  Receipt Date: 20030724
  Transmission Date: 20050211
  Serious: Yes (Death)
  Sender: FDA-Public Use
  Company Number: 163-20785-03070546

PATIENT
  Age: 54 Year
  Sex: Male
  Weight: 75.9 kg

DRUGS (1)
  1. THALOMID [Suspect]
     Indication: METASTASES TO CENTRAL NERVOUS SYSTEM
     Dosage: 200-1200MG, DAILY, ORAL
     Route: 048
     Dates: start: 20030508, end: 20030625

REACTIONS (4)
  - DEATH [None]
  - DISEASE PROGRESSION [None]
  - MULTI-ORGAN FAILURE [None]
  - NEUROPATHY [None]
